FAERS Safety Report 10261253 (Version 2)
Quarter: 2014Q3

REPORT INFORMATION
  Report Type: Spontaneous
  Country: JP (occurrence: JP)
  Receive Date: 20140626
  Receipt Date: 20140702
  Transmission Date: 20150326
  Serious: No
  Sender: FDA-Public Use
  Company Number: JP-ELI_LILLY_AND_COMPANY-JP201406006627

PATIENT
  Age: 68 Year
  Sex: Female
  Weight: 50.1 kg

DRUGS (8)
  1. CALCIUM CARBONATE. [Concomitant]
     Active Substance: CALCIUM CARBONATE
     Indication: HAEMODIALYSIS
     Dosage: 500 MG, TID
     Route: 048
     Dates: end: 20131117
  2. ZYLORIC [Concomitant]
     Active Substance: ALLOPURINOL
     Indication: HAEMODIALYSIS
     Dosage: 100 MG, PRN
     Route: 048
  3. TAKEPRON [Concomitant]
     Active Substance: LANSOPRAZOLE
     Indication: HAEMODIALYSIS
     Dosage: 15 MG, QD
     Route: 048
  4. ARTIST [Concomitant]
     Active Substance: CARVEDILOL
     Indication: HAEMODIALYSIS
     Dosage: 2.5 MG, QD
     Route: 048
  5. ALFAROL [Concomitant]
     Active Substance: ALFACALCIDOL
     Indication: HAEMODIALYSIS
     Dosage: 0.25 UG, QD
     Route: 048
     Dates: end: 20131117
  6. SIGMART [Concomitant]
     Active Substance: NICORANDIL
     Indication: HAEMODIALYSIS
     Dosage: 5 MG, TID
     Route: 048
  7. PLAVIX [Concomitant]
     Active Substance: CLOPIDOGREL BISULFATE
     Indication: HAEMODIALYSIS
     Dosage: 75 MG, QD
     Route: 048
  8. FORTEO [Suspect]
     Active Substance: TERIPARATIDE
     Indication: OSTEOPOROSIS
     Dosage: 20 UG, QD
     Route: 058
     Dates: start: 20131101, end: 20131120

REACTIONS (1)
  - Hypocalcaemia [Recovered/Resolved]

NARRATIVE: CASE EVENT DATE: 20131118
